FAERS Safety Report 9116932 (Version 1)
Quarter: 2013Q1

REPORT INFORMATION
  Report Type: Spontaneous
  Country: NL (occurrence: NL)
  Receive Date: 20130225
  Receipt Date: 20130225
  Transmission Date: 20140127
  Serious: Yes (Life-Threatening)
  Sender: FDA-Public Use
  Company Number: NL-JNJFOC-20130206519

PATIENT
  Age: 59 Year
  Sex: Male
  Weight: 80 kg

DRUGS (1)
  1. HALOPERIDOL [Suspect]
     Indication: DELIRIUM
     Route: 030
     Dates: start: 20130202, end: 20130203

REACTIONS (2)
  - Rhabdomyolysis [Recovered/Resolved with Sequelae]
  - Hyperthermia [Recovered/Resolved with Sequelae]
